FAERS Safety Report 14609889 (Version 8)
Quarter: 2018Q3

REPORT INFORMATION
  Report Type: Report from Study
  Country: DE (occurrence: DE)
  Receive Date: 20180307
  Receipt Date: 20180813
  Transmission Date: 20181010
  Serious: Yes (Other)
  Sender: FDA-Public Use
  Company Number: DE-TEVA-2017-DE-836528

PATIENT
  Age: 71 Year
  Sex: Male
  Weight: 87 kg

DRUGS (41)
  1. FLUOROURACIL. [Suspect]
     Active Substance: FLUOROURACIL
     Dosage: 2X/WEEK; IV BOLUS
     Route: 040
     Dates: start: 20160711, end: 20160711
  2. PEGYLATED LIPOSOMAL IRINOTECAN [Suspect]
     Active Substance: IRINOTECAN HYDROCHLORIDE
     Dosage: BIW
     Route: 042
     Dates: start: 20160627, end: 20160627
  3. PEGYLATED LIPOSOMAL IRINOTECAN [Suspect]
     Active Substance: IRINOTECAN HYDROCHLORIDE
     Route: 042
     Dates: start: 20160330, end: 20160330
  4. AVASTIN [Suspect]
     Active Substance: BEVACIZUMAB
     Indication: PRODUCT USED FOR UNKNOWN INDICATION
     Route: 042
     Dates: start: 20160224
  5. FOLINIC ACID [Concomitant]
     Active Substance: LEUCOVORIN
     Dates: start: 20160208, end: 20160711
  6. VALSARTAN. [Concomitant]
     Active Substance: VALSARTAN
     Indication: HYPERTENSION
     Dosage: 80 MILLIGRAM DAILY; QD
     Route: 048
  7. FLUOROURACIL. [Suspect]
     Active Substance: FLUOROURACIL
     Dosage: DOSAGES BETWEEN 600 MG AND 808 MG
     Route: 040
     Dates: start: 20160208, end: 20160208
  8. PEGYLATED LIPOSOMAL IRINOTECAN [Suspect]
     Active Substance: IRINOTECAN HYDROCHLORIDE
     Dosage: BIW
     Route: 042
     Dates: start: 20160411, end: 20160411
  9. FOLINIC ACID [Concomitant]
     Active Substance: LEUCOVORIN
     Indication: PRODUCT USED FOR UNKNOWN INDICATION
     Route: 042
     Dates: start: 20160613, end: 20160613
  10. FOLINIC ACID [Concomitant]
     Active Substance: LEUCOVORIN
     Route: 042
     Dates: start: 20160711, end: 20160711
  11. FOLINIC ACID [Concomitant]
     Active Substance: LEUCOVORIN
     Route: 042
     Dates: start: 20160222, end: 20160222
  12. FOLINIC ACID [Concomitant]
     Active Substance: LEUCOVORIN
     Route: 042
     Dates: start: 20160425, end: 20160425
  13. FLUOROURACIL. [Suspect]
     Active Substance: FLUOROURACIL
     Dosage: 2X/WEEK; IV BOLUS
     Route: 040
     Dates: start: 20160411, end: 20160411
  14. FLUOROURACIL. [Suspect]
     Active Substance: FLUOROURACIL
     Route: 042
     Dates: start: 20160613
  15. FLUOROURACIL. [Suspect]
     Active Substance: FLUOROURACIL
     Dosage: 2X/WEEK; IV BOLUS
     Route: 040
     Dates: start: 20160222, end: 20160222
  16. FLUOROURACIL. [Suspect]
     Active Substance: FLUOROURACIL
     Dosage: 2X/WEEK; IV BOLUS
     Route: 040
     Dates: start: 20160425, end: 20160425
  17. FLUOROURACIL. [Suspect]
     Active Substance: FLUOROURACIL
     Dosage: 2X/WEEK; IV BOLUS
     Route: 040
     Dates: start: 20160314, end: 20160314
  18. PEGYLATED LIPOSOMAL IRINOTECAN [Suspect]
     Active Substance: IRINOTECAN HYDROCHLORIDE
     Indication: OFF LABEL USE
     Dosage: BIW
     Route: 042
     Dates: start: 20160711, end: 20160711
  19. PEGYLATED LIPOSOMAL IRINOTECAN [Suspect]
     Active Substance: IRINOTECAN HYDROCHLORIDE
     Dosage: 270 MILLIGRAM DAILY; BIW
     Route: 042
     Dates: start: 20160411, end: 20160411
  20. PEGYLATED LIPOSOMAL IRINOTECAN [Suspect]
     Active Substance: IRINOTECAN HYDROCHLORIDE
     Dosage: BIW
     Route: 042
     Dates: start: 20160222, end: 20160222
  21. PEGYLATED LIPOSOMAL IRINOTECAN [Suspect]
     Active Substance: IRINOTECAN HYDROCHLORIDE
     Dosage: 270 MG, 2X A WEEK
     Route: 042
     Dates: start: 20160425, end: 20160425
  22. FOLINIC ACID [Concomitant]
     Active Substance: LEUCOVORIN
     Route: 042
     Dates: start: 20160330, end: 20160330
  23. OXALIPLATIN. [Concomitant]
     Active Substance: OXALIPLATIN
     Indication: COLORECTAL CANCER
     Dosage: 2X/WEEK
     Route: 042
     Dates: start: 20160919, end: 20160919
  24. VALSARTAN. [Concomitant]
     Active Substance: VALSARTAN
     Indication: PRODUCT USED FOR UNKNOWN INDICATION
  25. FLUOROURACIL. [Suspect]
     Active Substance: FLUOROURACIL
     Dosage: 606 MILLIGRAM DAILY; 606 MG, UNK
     Route: 040
     Dates: start: 20160330, end: 20160330
  26. AVASTIN [Suspect]
     Active Substance: BEVACIZUMAB
     Indication: COLORECTAL CANCER
     Route: 042
     Dates: start: 20160615, end: 20160615
  27. FOLINIC ACID [Concomitant]
     Active Substance: LEUCOVORIN
     Route: 042
     Dates: start: 20160314, end: 20160314
  28. OXALIPLATIN. [Concomitant]
     Active Substance: OXALIPLATIN
     Indication: PRODUCT USED FOR UNKNOWN INDICATION
  29. FLUOROURACIL. [Suspect]
     Active Substance: FLUOROURACIL
     Dosage: 2X/WEEK; IV BOLUS
     Route: 040
     Dates: start: 20160430, end: 20160430
  30. PEGYLATED LIPOSOMAL IRINOTECAN [Suspect]
     Active Substance: IRINOTECAN HYDROCHLORIDE
     Dosage: BIW
     Route: 042
     Dates: start: 20160314, end: 20160314
  31. PEGYLATED LIPOSOMAL IRINOTECAN [Suspect]
     Active Substance: IRINOTECAN HYDROCHLORIDE
     Dosage: BIW
     Route: 042
     Dates: start: 20160208, end: 20160208
  32. PEGYLATED LIPOSOMAL IRINOTECAN [Suspect]
     Active Substance: IRINOTECAN HYDROCHLORIDE
     Dosage: 270 MILLIGRAM DAILY;
     Route: 042
     Dates: start: 20160425, end: 20160425
  33. FLUOROURACIL. [Suspect]
     Active Substance: FLUOROURACIL
     Indication: COLORECTAL CANCER
     Dosage: 2X/WEEK; IV BOLUS
     Route: 040
     Dates: start: 20160613, end: 20160613
  34. FLUOROURACIL. [Suspect]
     Active Substance: FLUOROURACIL
     Dosage: 2X/WEEK; IV BOLUS
     Route: 040
     Dates: start: 20160627, end: 20160627
  35. FLUOROURACIL. [Suspect]
     Active Substance: FLUOROURACIL
     Dosage: 2X/WEEK; IV BOLUS
     Route: 040
     Dates: start: 20160314, end: 20160314
  36. PEGYLATED LIPOSOMAL IRINOTECAN [Suspect]
     Active Substance: IRINOTECAN HYDROCHLORIDE
     Indication: COLORECTAL CANCER
     Dosage: BIW
     Route: 042
     Dates: start: 20160613, end: 20160613
  37. PEGYLATED LIPOSOMAL IRINOTECAN [Suspect]
     Active Substance: IRINOTECAN HYDROCHLORIDE
     Dosage: BIW
     Route: 042
     Dates: start: 20160314, end: 20160314
  38. FOLINIC ACID [Concomitant]
     Active Substance: LEUCOVORIN
     Indication: COLORECTAL CANCER
     Route: 042
     Dates: start: 20160411, end: 20160411
  39. FOLINIC ACID [Concomitant]
     Active Substance: LEUCOVORIN
     Route: 042
     Dates: start: 20160627, end: 20160627
  40. FOLINIC ACID [Concomitant]
     Active Substance: LEUCOVORIN
     Route: 042
     Dates: start: 20160208, end: 20160208
  41. FOLINIC ACID [Concomitant]
     Active Substance: LEUCOVORIN
     Route: 042
     Dates: start: 20160425, end: 20160425

REACTIONS (4)
  - Neutropenia [Recovered/Resolved]
  - Epistaxis [Recovered/Resolved]
  - Off label use [Unknown]
  - Inappropriate schedule of drug administration [Unknown]

NARRATIVE: CASE EVENT DATE: 20160307
